FAERS Safety Report 21502228 (Version 1)
Quarter: 2022Q4

REPORT INFORMATION
  Report Type: Spontaneous
  Country: US (occurrence: US)
  Receive Date: 20221025
  Receipt Date: 20221025
  Transmission Date: 20230113
  Serious: Yes (Other)
  Sender: FDA-Public Use
  Company Number: US-UCBSA-2022060797

PATIENT
  Age: 26 Year
  Sex: Female

DRUGS (1)
  1. VIMPAT [Suspect]
     Active Substance: LACOSAMIDE
     Indication: Epilepsy
     Dosage: 200 MILLIGRAM

REACTIONS (5)
  - Cardiotoxicity [Unknown]
  - Neurotoxicity [Unknown]
  - Ventricular tachycardia [Unknown]
  - Pneumonia aspiration [Unknown]
  - Overdose [Unknown]
